FAERS Safety Report 6420217-4 (Version None)
Quarter: 2009Q4

REPORT INFORMATION
  Report Type: 
  Country: None (occurrence: None)
  Receive Date: 20091029
  Receipt Date: 20091016
  Transmission Date: 20100525
  Serious: Yes (Other)
  Sender: FDA-Public Use
  Company Number: PHHY2009ES44835

PATIENT
  Age: 73 Year
  Sex: Male

DRUGS (4)
  1. ZOMETA [Suspect]
     Dosage: 4 MG, UNK
     Dates: start: 20080101, end: 20080901
  2. MASTICAL D [Concomitant]
  3. ZYLORIC [Concomitant]
  4. DIGARIL PROLIB [Concomitant]
     Indication: DYSLIPIDAEMIA

REACTIONS (5)
  - BONE DISORDER [None]
  - BONE PAIN [None]
  - HYPOAESTHESIA ORAL [None]
  - OSTEOMYELITIS [None]
  - PAIN [None]
